FAERS Safety Report 16876489 (Version 2)
Quarter: 2019Q4

REPORT INFORMATION
  Report Type: Spontaneous
  Country: US (occurrence: US)
  Receive Date: 20191002
  Receipt Date: 20191007
  Transmission Date: 20200122
  Serious: Yes (Hospitalization, Other)
  Sender: FDA-Public Use
  Company Number: US-SUNOVION-2019SUN004006

PATIENT
  Sex: Female
  Weight: 72.56 kg

DRUGS (2)
  1. LATUDA [Suspect]
     Active Substance: LURASIDONE HYDROCHLORIDE
     Indication: SCHIZOAFFECTIVE DISORDER
  2. LATUDA [Suspect]
     Active Substance: LURASIDONE HYDROCHLORIDE
     Indication: BIPOLAR DISORDER
     Dosage: 40 MG FOR OVER 7 YEARS
     Route: 048

REACTIONS (12)
  - Tardive dyskinesia [Unknown]
  - Off label use [Unknown]
  - Migraine [Not Recovered/Not Resolved]
  - Chest pain [Unknown]
  - Dyskinesia [Not Recovered/Not Resolved]
  - Peripheral motor neuropathy [Not Recovered/Not Resolved]
  - Fall [Unknown]
  - Head titubation [Not Recovered/Not Resolved]
  - Somnolence [Not Recovered/Not Resolved]
  - Lip injury [Not Recovered/Not Resolved]
  - Head injury [Not Recovered/Not Resolved]
  - Gait disturbance [Not Recovered/Not Resolved]
